FAERS Safety Report 7009159-3 (Version None)
Quarter: 2010Q3

REPORT INFORMATION
  Report Type: 
  Country: None (occurrence: None)
  Receive Date: 20100921
  Receipt Date: 20100913
  Transmission Date: 20110219
  Serious: Yes (Other)
  Sender: FDA-Public Use
  Company Number: 1000015905

PATIENT
  Age: 58 Year
  Sex: Female
  Weight: 60 kg

DRUGS (7)
  1. SAVELLA [Suspect]
     Indication: FIBROMYALGIA
     Dosage: 12.5 MG (12.5 MG, 1 IN 1 D),ORAL
     Route: 048
     Dates: start: 20100727, end: 20100727
  2. SAVELLA [Suspect]
     Indication: FIBROMYALGIA
     Dosage: 25 MG (12.5 MG, 2 IN 1 D), ORAL
     Route: 048
     Dates: start: 20100728, end: 20100816
  3. ZOLAZEPAM (BENZODIAZEPINE DERIVATIVES)(BENZODIAZEPINE DERIVATIVES) [Concomitant]
  4. DEXAMETHASONE [Concomitant]
  5. LOVASTATIN (LOVASTATIN) (LOVASTATIN) [Concomitant]
  6. SYNTHROID (LEVOTHYROXINE SODIUM) (LEVOTHYROXINE SODIUM) [Concomitant]
  7. FLECTOR (POULTICE OR PATCH) [Concomitant]

REACTIONS (3)
  - DISORIENTATION [None]
  - IMPAIRED DRIVING ABILITY [None]
  - ROAD TRAFFIC ACCIDENT [None]
